FAERS Safety Report 21064569 (Version 1)
Quarter: 2022Q3

REPORT INFORMATION
  Report Type: Spontaneous
  Country: CN (occurrence: CN)
  Receive Date: 20220711
  Receipt Date: 20220711
  Transmission Date: 20221027
  Serious: Yes (Hospitalization)
  Sender: FDA-Public Use
  Company Number: CN-Merck Healthcare KGaA-9334261

PATIENT
  Age: 42 Year
  Sex: Female

DRUGS (2)
  1. ERBITUX [Suspect]
     Active Substance: CETUXIMAB
     Indication: Bone cancer
     Dosage: 700 MG, UNKNOWN
     Route: 041
     Dates: start: 20220405, end: 20220405
  2. PACLITAXEL [Concomitant]
     Active Substance: PACLITAXEL
     Indication: Bone cancer
     Dosage: 240 MG, UNKNOWN
     Route: 041
     Dates: start: 20220405, end: 20220405

REACTIONS (1)
  - White blood cell count decreased [Recovering/Resolving]

NARRATIVE: CASE EVENT DATE: 20220405
